FAERS Safety Report 5158753-3 (Version None)
Quarter: 2006Q4

REPORT INFORMATION
  Report Type: 
  Country: None (occurrence: None)
  Receive Date: 20061128
  Receipt Date: 20040109
  Transmission Date: 20070319
  Serious: Yes (Death, Hospitalization)
  Sender: FDA-Public Use
  Company Number: US-PURDUE-USA_2004_0012397

PATIENT
  Age: 4 Month
  Sex: Male

DRUGS (1)
  1. OXYCONTIN [Suspect]
     Indication: DRUG ABUSER
     Dosage: UNK, SEE TEXT
     Route: 048
     Dates: start: 20020720, end: 20020720

REACTIONS (7)
  - BRAIN DAMAGE [None]
  - HEPATOCELLULAR DAMAGE [None]
  - OVERDOSE [None]
  - PULSE ABSENT [None]
  - RENAL INJURY [None]
  - RESPIRATORY ARREST [None]
  - VICTIM OF HOMICIDE [None]
